FAERS Safety Report 13805794 (Version 1)
Quarter: 2017Q3

REPORT INFORMATION
  Report Type: Report from Study
  Country: US (occurrence: US)
  Receive Date: 20170728
  Receipt Date: 20170728
  Transmission Date: 20171127
  Serious: Yes (Hospitalization, Other)
  Sender: FDA-Public Use
  Company Number: US-ASTELLAS-2017US024326

PATIENT
  Age: 78 Year
  Sex: Female
  Weight: 46 kg

DRUGS (3)
  1. GEMCITABINE [Concomitant]
     Active Substance: GEMCITABINE\GEMCITABINE HYDROCHLORIDE
     Indication: GALLBLADDER CANCER
     Dosage: 2 WEEKS ON AND 2 WEEKS OFF ;ONGOING: NO
     Route: 042
     Dates: start: 20160606, end: 201608
  2. ERLOTINIB [Suspect]
     Active Substance: ERLOTINIB
     Indication: GALLBLADDER CANCER
     Route: 048
  3. XELODA [Suspect]
     Active Substance: CAPECITABINE
     Indication: GALLBLADDER CANCER
     Dosage: 5 PILLS PER DAY 2 WEEKS ON 2 WEEKS OFF
     Route: 048
     Dates: start: 20160607, end: 201608

REACTIONS (18)
  - Perforation bile duct [Recovered/Resolved]
  - Biliary abscess [Recovered/Resolved]
  - Feeding disorder [Recovered/Resolved]
  - Gastrointestinal disorder [Not Recovered/Not Resolved]
  - Bile duct obstruction [Recovered/Resolved]
  - Systemic candida [Unknown]
  - Decreased appetite [Not Recovered/Not Resolved]
  - Off label use [Unknown]
  - Dysphagia [Unknown]
  - Escherichia bacteraemia [Unknown]
  - Intestinal fistula [Recovered/Resolved]
  - Biliary tract disorder [Not Recovered/Not Resolved]
  - Device related thrombosis [Recovered/Resolved]
  - Weight decreased [Not Recovered/Not Resolved]
  - Pharyngeal neoplasm [Unknown]
  - Asthenia [Not Recovered/Not Resolved]
  - Aphthous ulcer [Not Recovered/Not Resolved]
  - Abdominal mass [Recovered/Resolved]

NARRATIVE: CASE EVENT DATE: 20160728
